FAERS Safety Report 9911933 (Version 2)
Quarter: 2014Q1

REPORT INFORMATION
  Report Type: Spontaneous
  Country: US (occurrence: US)
  Receive Date: 20140219
  Receipt Date: 20140219
  Transmission Date: 20141002
  Serious: No
  Sender: FDA-Public Use
  Company Number: US-MYLANLABS-2013S1020759

PATIENT
  Age: 72 Year
  Sex: Male
  Weight: 92.99 kg

DRUGS (1)
  1. EPIPEN 2-PAK [Suspect]
     Indication: ALLERGY TO ARTHROPOD BITE
     Route: 030

REACTIONS (2)
  - Drug ineffective [Recovering/Resolving]
  - Device failure [Recovering/Resolving]
